FAERS Safety Report 5123923-7 (Version None)
Quarter: 2006Q4

REPORT INFORMATION
  Report Type: 
  Country: None (occurrence: None)
  Receive Date: 20061010
  Receipt Date: 20061009
  Transmission Date: 20070319
  Serious: Yes (Other)
  Sender: FDA-Public Use
  Company Number: US-GLAXOSMITHKLINE-A0622856A

PATIENT
  Age: 54 Year
  Sex: Male

DRUGS (2)
  1. NICODERM CQ [Suspect]
     Indication: SMOKING CESSATION THERAPY
     Dosage: 21MG SEE DOSAGE TEXT
     Route: 062
  2. NICOTINE [Concomitant]
     Route: 055

REACTIONS (5)
  - AGGRESSION [None]
  - ANGER [None]
  - FRUSTRATION [None]
  - HYPERHIDROSIS [None]
  - INTENTIONAL DRUG MISUSE [None]
